FAERS Safety Report 13936225 (Version 1)
Quarter: 2017Q3

REPORT INFORMATION
  Report Type: Spontaneous
  Country: UA (occurrence: UA)
  Receive Date: 20170905
  Receipt Date: 20170905
  Transmission Date: 20171127
  Serious: Yes (Other)
  Sender: FDA-Public Use
  Company Number: None

PATIENT
  Age: 27 Year
  Sex: Male
  Weight: 77 kg

DRUGS (1)
  1. MINOXIDIL 5 % - CUTANEOUS SOLUTION [Suspect]
     Active Substance: MINOXIDIL
     Indication: ALOPECIA
     Dosage: ?          QUANTITY:7 SPRAY(S);?
     Route: 061
     Dates: start: 20170523, end: 20170712

REACTIONS (9)
  - Astigmatism [None]
  - Eye irritation [None]
  - Conjunctivitis [None]
  - Vision blurred [None]
  - Ocular vascular disorder [None]
  - Abnormal sensation in eye [None]
  - Eye pruritus [None]
  - Keratitis [None]
  - Palpitations [None]

NARRATIVE: CASE EVENT DATE: 20170523
